FAERS Safety Report 5844583-3 (Version None)
Quarter: 2008Q3

REPORT INFORMATION
  Report Type: 
  Country: None (occurrence: None)
  Receive Date: 20080813
  Receipt Date: 20080813
  Transmission Date: 20090109
  Serious: No
  Sender: FDA-Public Use
  Company Number: None

PATIENT
  Sex: Male

DRUGS (1)
  1. TARCEVA [Suspect]
     Dosage: 150 2 ONCE Q6 PO
     Route: 048
     Dates: start: 20080720

REACTIONS (3)
  - DIARRHOEA [None]
  - DYSGEUSIA [None]
  - EYE IRRITATION [None]
